FAERS Safety Report 6470576-1 (Version None)
Quarter: 2009Q4

REPORT INFORMATION
  Report Type: 
  Country: None (occurrence: None)
  Receive Date: 20091203
  Receipt Date: 20090623
  Transmission Date: 20100525
  Serious: No
  Sender: FDA-Public Use
  Company Number: US-ABBOTT-09P-163-0581468-00

PATIENT
  Sex: Female
  Weight: 76.272 kg

DRUGS (3)
  1. MERIDIA [Suspect]
     Indication: DECREASED APPETITE
     Route: 048
     Dates: start: 20090523, end: 20090524
  2. MERIDIA [Suspect]
     Indication: WEIGHT CONTROL
  3. ADVIL [Concomitant]
     Indication: MENSTRUAL DISCOMFORT

REACTIONS (1)
  - DIZZINESS [None]
